FAERS Safety Report 6345825-0 (Version None)
Quarter: 2009Q3

REPORT INFORMATION
  Report Type: 
  Country: None (occurrence: None)
  Receive Date: 20090909
  Receipt Date: 20090901
  Transmission Date: 20100115
  Serious: Yes (Death, Hospitalization)
  Sender: FDA-Public Use
  Company Number: A0786523A

PATIENT
  Age: 59 Year
  Sex: Female

DRUGS (1)
  1. AVANDIA [Suspect]
     Dosage: 8MG PER DAY
     Route: 048
     Dates: start: 20070410, end: 20070508

REACTIONS (4)
  - CARDIAC ARREST [None]
  - DEATH [None]
  - HEART INJURY [None]
  - MYOCARDIAL INFARCTION [None]
